FAERS Safety Report 10017286 (Version 1)
Quarter: 2014Q1

REPORT INFORMATION
  Report Type: Spontaneous
  Country: US (occurrence: US)
  Receive Date: 20140318
  Receipt Date: 20140318
  Transmission Date: 20141002
  Serious: Yes (Other)
  Sender: FDA-Public Use
  Company Number: US-JNJFOC-20140306466

PATIENT
  Age: 62 Year
  Sex: Female
  Weight: 61.24 kg

DRUGS (2)
  1. XARELTO [Suspect]
     Indication: CARDIAC OPERATION
     Route: 048
     Dates: start: 20130530, end: 20130710
  2. XARELTO [Suspect]
     Indication: CARDIAC OPERATION
     Route: 048

REACTIONS (2)
  - Throat tightness [Recovered/Resolved]
  - Mouth ulceration [Recovered/Resolved]
